FAERS Safety Report 9268894 (Version 1)
Quarter: 2013Q2

REPORT INFORMATION
  Report Type: Spontaneous
  Country: BR (occurrence: BR)
  Receive Date: 20130503
  Receipt Date: 20130503
  Transmission Date: 20140414
  Serious: Yes (Other)
  Sender: FDA-Public Use
  Company Number: BR-AMGEN-BRASP2011049995

PATIENT
  Age: 60 Year
  Sex: Female
  Weight: 70 kg

DRUGS (27)
  1. ENBREL [Suspect]
     Indication: RHEUMATOID ARTHRITIS
     Dosage: 50 MG, QWK
     Route: 058
     Dates: start: 201201, end: 20120617
  2. ENBREL [Suspect]
     Dosage: 50 MG, QWK
     Route: 058
     Dates: start: 2012
  3. ENBREL [Suspect]
     Dosage: UNK
  4. AMITRIPTYLINE [Concomitant]
     Indication: SLEEP DISORDER
     Dosage: 25 MG, 2X/DAY
  5. ARAVA [Concomitant]
     Indication: ARTHRITIS
     Dosage: 20 MG, UNK
     Dates: start: 2005
  6. ARAVA [Concomitant]
     Indication: OSTEOARTHRITIS
  7. LOSARTAN POTASSIUM [Concomitant]
     Indication: HYPERTENSION
     Dosage: UNK
  8. OMEPRAZOLE [Concomitant]
     Dosage: 20 MG, 2X/DAY
  9. ATENOLOL [Concomitant]
     Dosage: 50 MG, 1 TABLET DAILY
  10. OSTEOFORM                          /00751501/ [Concomitant]
     Dosage: 70 MG, UNK
  11. AMLODIPINE BESILATE W/LOSARTAN POTASSIUM [Concomitant]
     Dosage: AMLODIPINE100MG/LOSARTAN 5MG
  12. AAS PROTECT [Concomitant]
     Dosage: 10 MG, UNK
  13. DRAMIN B-6 [Concomitant]
     Dosage: UNK
  14. SIMVASTATIN [Concomitant]
     Dosage: 20 MG, 1X/DAY
  15. HYDROCORTISONE [Concomitant]
     Dosage: 5 MG, UNK
  16. DORFLEX [Concomitant]
     Dosage: 50 MG, UNK
  17. VITAMINS                           /00067501/ [Concomitant]
     Dosage: UNK
  18. ABLOK PLUS [Concomitant]
     Indication: BLOOD PRESSURE
     Dosage: UNK, 1X/DAY
  19. CALCIUM CARBONATE [Concomitant]
     Dosage: UNK, 1X/DAY
  20. VITAMIN D3 [Concomitant]
     Dosage: UNK, 1X/DAY
  21. AAS [Concomitant]
     Indication: POOR PERIPHERAL CIRCULATION
     Dosage: UNK, 1X/DAY
  22. CALCIUM [Concomitant]
     Dosage: UNK
  23. ATORVASTATIN [Concomitant]
     Dosage: UNK
  24. ALENDRONATE SODIUM [Concomitant]
     Dosage: 70 MG, UNK
  25. ACETYLSALICYLIC ACID [Concomitant]
     Dosage: 10 MG, UNK
  26. AMLODIPINE [Concomitant]
     Dosage: UNK
  27. PREDSIM [Concomitant]
     Dosage: UNK

REACTIONS (10)
  - Oropharyngeal pain [Unknown]
  - Injection site pain [Unknown]
  - Pneumonia [Recovered/Resolved]
  - Injection site pruritus [Not Recovered/Not Resolved]
  - Malaise [Unknown]
  - Fibromyalgia [Unknown]
  - Tachycardia [Not Recovered/Not Resolved]
  - Pain [Not Recovered/Not Resolved]
  - Application site pain [Unknown]
  - Application site erythema [Unknown]
